FAERS Safety Report 20063868 (Version 1)
Quarter: 2021Q4

REPORT INFORMATION
  Report Type: Spontaneous
  Country: CN (occurrence: None)
  Receive Date: 20211112
  Receipt Date: 20211112
  Transmission Date: 20220303
  Serious: Yes (Death, Other)
  Sender: FDA-Public Use
  Company Number: 2021A803883

PATIENT
  Sex: Female

DRUGS (1)
  1. OLAPARIB [Suspect]
     Active Substance: OLAPARIB
     Indication: Ovarian cancer
     Dosage: 600.0MG UNKNOWN
     Route: 048
     Dates: start: 20200318

REACTIONS (2)
  - Death [Fatal]
  - Haematopoietic neoplasm [Unknown]

NARRATIVE: CASE EVENT DATE: 20211001
